FAERS Safety Report 7286619-1 (Version None)
Quarter: 2011Q1

REPORT INFORMATION
  Report Type: 
  Country: None (occurrence: None)
  Receive Date: 20110210
  Receipt Date: 20110120
  Transmission Date: 20110831
  Serious: No
  Sender: FDA-Public Use
  Company Number: US-B.I. PHARMACEUTICALS,INC./RIDGEFIELD-2011-BP-02058BP

PATIENT
  Sex: Female

DRUGS (4)
  1. PERCOCET [Concomitant]
     Indication: BACK PAIN
  2. SPIRIVA [Suspect]
     Indication: CHRONIC OBSTRUCTIVE PULMONARY DISEASE
     Dosage: 18 MCG
     Route: 055
     Dates: start: 20101201
  3. PROVENTIL [Concomitant]
     Indication: CHRONIC OBSTRUCTIVE PULMONARY DISEASE
  4. NORVASC [Concomitant]
     Indication: HYPERTENSION

REACTIONS (2)
  - MALAISE [None]
  - DIZZINESS [None]
